FAERS Safety Report 8357207-0 (Version None)
Quarter: 2012Q2

REPORT INFORMATION
  Report Type: 
  Country: None (occurrence: None)
  Receive Date: 20120514
  Receipt Date: 20120430
  Transmission Date: 20120825
  Serious: Yes (Death, Hospitalization, Other)
  Sender: FDA-Public Use
  Company Number: US-ROCHE-1064941

PATIENT
  Age: 53 Year
  Sex: Male
  Weight: 82 kg

DRUGS (1)
  1. VISMODEGIB [Suspect]
     Indication: CHONDROSARCOMA
     Dosage: LAST DOSE: 05/MAR/2012, CYCLE 1 DAY 20
     Route: 048
     Dates: start: 20120215

REACTIONS (4)
  - ASPARTATE AMINOTRANSFERASE INCREASED [None]
  - ACUTE RESPIRATORY DISTRESS SYNDROME [None]
  - ALANINE AMINOTRANSFERASE INCREASED [None]
  - EMBOLISM [None]
